FAERS Safety Report 15449331 (Version 2)
Quarter: 2018Q4

REPORT INFORMATION
  Report Type: Spontaneous
  Country: CA (occurrence: CA)
  Receive Date: 20181001
  Receipt Date: 20181008
  Transmission Date: 20190204
  Serious: Yes (Hospitalization, Other)
  Sender: FDA-Public Use
  Company Number: CA-ROCHE-2191824

PATIENT
  Age: 48 Year
  Sex: Female

DRUGS (5)
  1. RUPALL [Concomitant]
     Indication: CHRONIC SPONTANEOUS URTICARIA
     Route: 048
     Dates: start: 20180722
  2. ATROVENT [Concomitant]
     Active Substance: IPRATROPIUM BROMIDE
     Indication: ASTHMA
     Route: 055
     Dates: start: 201712
  3. XOLAIR [Suspect]
     Active Substance: OMALIZUMAB
     Indication: CHRONIC SPONTANEOUS URTICARIA
     Route: 058
     Dates: start: 20180830
  4. VENTOLIN [Concomitant]
     Active Substance: ALBUTEROL SULFATE
     Indication: ASTHMA
     Route: 055
     Dates: start: 2007
  5. CLARITIN [Concomitant]
     Active Substance: LORATADINE
     Indication: ASTHMA
     Route: 048

REACTIONS (5)
  - Hepatic enzyme increased [Unknown]
  - Pruritus [Unknown]
  - Malaise [Unknown]
  - Chest pain [Unknown]
  - Pain [Unknown]

NARRATIVE: CASE EVENT DATE: 20180830
